FAERS Safety Report 19005818 (Version 2)
Quarter: 2021Q2

REPORT INFORMATION
  Report Type: Report from Study
  Country: US (occurrence: US)
  Receive Date: 20210314
  Receipt Date: 20210506
  Transmission Date: 20210717
  Serious: No
  Sender: FDA-Public Use
  Company Number: US-ORGANON-O2103USA001218

PATIENT
  Age: 41 Year
  Sex: Female

DRUGS (1)
  1. IMPLANON [Suspect]
     Active Substance: ETONOGESTREL
     Dosage: 1 IMPLANT (STRENGTH: 68 MG)
     Route: 059
     Dates: start: 201802

REACTIONS (2)
  - No adverse event [Unknown]
  - Incorrect product administration duration [Unknown]

NARRATIVE: CASE EVENT DATE: 202102
